FAERS Safety Report 18942065 (Version 1)
Quarter: 2021Q1

REPORT INFORMATION
  Report Type: Report from Study
  Country: NL (occurrence: NL)
  Receive Date: 20210225
  Receipt Date: 20210225
  Transmission Date: 20210420
  Serious: Yes (Other)
  Sender: FDA-Public Use
  Company Number: NL-SA-2021SA063060

PATIENT

DRUGS (3)
  1. OXALIPLATIN. [Suspect]
     Active Substance: OXALIPLATIN
     Indication: METASTASES TO PERITONEUM
     Dosage: 92 MG/M2 [MAXIMUM 184 MG] DILUTED TO A TOTAL VOLUME OF 150 ML IN A 5 DEXTROSE SOLUTION
     Route: 033
  2. OXALIPLATIN. [Suspect]
     Active Substance: OXALIPLATIN
     Indication: COLORECTAL CANCER METASTATIC
  3. DEXTROSE. [Concomitant]
     Active Substance: DEXTROSE
     Dosage: 150 ML

REACTIONS (1)
  - Procedural pneumothorax [Unknown]
